FAERS Safety Report 5927231-3 (Version None)
Quarter: 2008Q4

REPORT INFORMATION
  Report Type: 
  Country: None (occurrence: None)
  Receive Date: 20081022
  Receipt Date: 20081014
  Transmission Date: 20090506
  Serious: Yes (Other)
  Sender: FDA-Public Use
  Company Number: US-GENENTECH-265675

PATIENT
  Sex: Male

DRUGS (4)
  1. AVASTIN [Suspect]
     Indication: OESOPHAGEAL CARCINOMA
  2. CISPLATIN [Concomitant]
     Indication: OESOPHAGEAL CARCINOMA
  3. IRINOTECAN HYDROCHLORIDE [Concomitant]
     Indication: OESOPHAGEAL CARCINOMA
  4. HYDREA [Concomitant]
     Indication: DRUG USE FOR UNKNOWN INDICATION

REACTIONS (1)
  - PENILE ULCERATION [None]
